FAERS Safety Report 4846659-6 (Version None)
Quarter: 2005Q4

REPORT INFORMATION
  Report Type: 
  Country: None (occurrence: None)
  Receive Date: 20051201
  Receipt Date: 20051118
  Transmission Date: 20060501
  Serious: Yes (Hospitalization)
  Sender: FDA-Public Use
  Company Number: 2005-0008848

PATIENT
  Age: 33 Year
  Sex: Female
  Weight: 58 kg

DRUGS (3)
  1. VIREAD [Suspect]
     Dosage: 90 DOSAGE FORMS, 1 IN 1 D, ORAL
     Route: 048
  2. REYATAZ [Suspect]
     Dosage: 24 DOSAGE FORMS, 1 IN 1 D, ORAL
     Route: 048
  3. BENZODIAZEPINE [Suspect]
     Dosage: 1 IN 1 D, ORAL
     Route: 048

REACTIONS (3)
  - MULTIPLE DRUG OVERDOSE INTENTIONAL [None]
  - SUICIDE ATTEMPT [None]
  - VOMITING [None]
